FAERS Safety Report 21534081 (Version 1)
Quarter: 2022Q4

REPORT INFORMATION
  Report Type: Spontaneous
  Country: US (occurrence: US)
  Receive Date: 20221101
  Receipt Date: 20221101
  Transmission Date: 20230112
  Serious: No
  Sender: FDA-Public Use
  Company Number: US-PARATEK PHARMACEUTICALS, INC.-2022PTK00241

PATIENT
  Age: 71 Year
  Sex: Male

DRUGS (1)
  1. NUZYRA [Suspect]
     Active Substance: OMADACYCLINE
     Indication: Localised infection
     Dosage: 300 MG, 1X/DAY ^EACH MORNING WHEN I WOKE UP ON AN EMPTY STOMACH^
     Route: 048
     Dates: start: 202207, end: 202207

REACTIONS (8)
  - Ocular discomfort [Unknown]
  - Blood pressure diastolic increased [Unknown]
  - Heart rate irregular [Unknown]
  - Malaise [Unknown]
  - Drug ineffective [Recovered/Resolved]
  - Heart rate increased [Unknown]
  - Headache [Unknown]
  - Incorrect dose administered [Recovered/Resolved]

NARRATIVE: CASE EVENT DATE: 20220701
